FAERS Safety Report 14029027 (Version 1)
Quarter: 2017Q4

REPORT INFORMATION
  Report Type: Spontaneous
  Country: US (occurrence: None)
  Receive Date: 20171002
  Receipt Date: 20171002
  Transmission Date: 20180321
  Serious: No
  Sender: FDA-Public Use
  Company Number: None

PATIENT
  Sex: Female
  Weight: 58.06 kg

DRUGS (6)
  1. PROLIA [Suspect]
     Active Substance: DENOSUMAB
     Indication: OSTEOPOROSIS
  2. CENTRUM [Concomitant]
     Active Substance: VITAMINS
  3. TRIAMPTERINE [Concomitant]
  4. CITRACAL [Concomitant]
     Active Substance: CALCIUM CITRATE
  5. BIOTIN [Concomitant]
     Active Substance: BIOTIN
  6. ATENOLOL. [Concomitant]
     Active Substance: ATENOLOL

REACTIONS (3)
  - Pubis fracture [None]
  - Condition aggravated [None]
  - Pubic pain [None]
